FAERS Safety Report 7791384-5 (Version None)
Quarter: 2011Q4

REPORT INFORMATION
  Report Type: 
  Country: None (occurrence: None)
  Receive Date: 20111003
  Receipt Date: 20110920
  Transmission Date: 20120403
  Serious: Yes (Other)
  Sender: FDA-Public Use
  Company Number: DE-ELI_LILLY_AND_COMPANY-DE201109005707

PATIENT
  Age: 35 Year
  Sex: Female

DRUGS (5)
  1. CYMBALTA [Suspect]
     Indication: DEPRESSION
     Dosage: 60 MG, UNKNOWN
     Route: 048
     Dates: start: 20110301
  2. PIPAMPERON [Concomitant]
  3. CYMBALTA [Suspect]
     Dosage: 30 MG, UNKNOWN
     Route: 048
     Dates: end: 20110401
  4. HALDOL [Concomitant]
     Dosage: UNK
     Dates: start: 20110401
  5. LYRICA [Concomitant]
     Dosage: UNK
     Dates: start: 20110301, end: 20110401

REACTIONS (5)
  - JAUNDICE [None]
  - ABDOMINAL SYMPTOM [None]
  - HEPATIC ENZYME INCREASED [None]
  - NAUSEA [None]
  - VOMITING [None]
